FAERS Safety Report 5425924-8 (Version None)
Quarter: 2007Q3

REPORT INFORMATION
  Report Type: 
  Country: None (occurrence: None)
  Receive Date: 20070827
  Receipt Date: 20070821
  Transmission Date: 20080115
  Serious: Yes (Death)
  Sender: FDA-Public Use
  Company Number: JP-BRISTOL-MYERS SQUIBB COMPANY-13888482

PATIENT
  Age: 7 Decade
  Sex: Female

DRUGS (5)
  1. PARAPLATIN [Suspect]
     Indication: OVARIAN CANCER
     Route: 033
     Dates: start: 20070712, end: 20070809
  2. TAXOL [Suspect]
     Indication: OVARIAN CANCER
     Route: 042
     Dates: start: 20070712, end: 20070809
  3. DECADRON [Concomitant]
     Route: 042
     Dates: start: 20070712, end: 20070809
  4. RESTAMIN [Concomitant]
     Route: 048
     Dates: start: 20070712, end: 20070809
  5. KYTRIL [Concomitant]
     Dates: start: 20070712, end: 20070809

REACTIONS (3)
  - GASTROINTESTINAL DISORDER [None]
  - NEUTROPHIL COUNT DECREASED [None]
  - RENAL FAILURE ACUTE [None]
